FAERS Safety Report 8457004-1 (Version None)
Quarter: 2012Q2

REPORT INFORMATION
  Report Type: 
  Country: None (occurrence: None)
  Receive Date: 20120621
  Receipt Date: 20120613
  Transmission Date: 20120825
  Serious: Yes (Hospitalization, Other)
  Sender: FDA-Public Use
  Company Number: FR-ABBOTT-12P-056-0946034-00

PATIENT
  Age: 37 Year
  Sex: Female

DRUGS (4)
  1. NORVIR [Suspect]
     Indication: HIV INFECTION
     Route: 048
     Dates: start: 20100928
  2. REYATAZ [Suspect]
     Indication: HIV INFECTION
     Dates: start: 20090106, end: 20100918
  3. TRUVADA [Suspect]
     Indication: HIV INFECTION
     Route: 048
     Dates: start: 20090106, end: 20100928
  4. ATRIPLA (EMTRICITABINE/TENOFOVIR/EFAVIRENZ) [Suspect]
     Indication: HIV INFECTION
     Route: 048
     Dates: start: 20100928

REACTIONS (2)
  - AUTOIMMUNE HEPATITIS [None]
  - HEPATITIS B [None]
